FAERS Safety Report 7621604-9 (Version None)
Quarter: 2011Q3

REPORT INFORMATION
  Report Type: 
  Country: None (occurrence: None)
  Receive Date: 20110719
  Receipt Date: 20110713
  Transmission Date: 20111222
  Serious: Yes (Hospitalization)
  Sender: FDA-Public Use
  Company Number: FR-ABBOTT-10P-056-0631017-00

PATIENT
  Sex: Male

DRUGS (6)
  1. ADALIMUMAB [Suspect]
     Indication: PSORIASIS
  2. INFLIXIMAB [Suspect]
     Indication: PSORIASIS
  3. ETANERCEPT [Suspect]
     Indication: PSORIASIS
  4. ADALIMUMAB [Suspect]
     Indication: PSORIATIC ARTHROPATHY
     Route: 058
     Dates: start: 20051001, end: 20051201
  5. INFLIXIMAB [Suspect]
     Indication: PSORIATIC ARTHROPATHY
     Route: 042
     Dates: start: 20070309, end: 20070810
  6. ETANERCEPT [Suspect]
     Indication: PSORIATIC ARTHROPATHY
     Route: 042
     Dates: start: 20060101, end: 20060601

REACTIONS (1)
  - CUTANEOUS SARCOIDOSIS [None]
